FAERS Safety Report 16466091 (Version 4)
Quarter: 2022Q4

REPORT INFORMATION
  Report Type: Report from Study
  Country: US (occurrence: US)
  Receive Date: 20190621
  Receipt Date: 20221230
  Transmission Date: 20230113
  Serious: No
  Sender: FDA-Public Use
  Company Number: US-ACORDA-ACO_159085_2019

PATIENT
  Age: 68 Year
  Sex: Female

DRUGS (5)
  1. INBRIJA [Suspect]
     Active Substance: LEVODOPA
     Indication: Parkinson^s disease
     Dosage: 42 MILLIGRAM CAPSULE, INHALE CONTENTS OF TWO CAPSULES UP TO FIVE TIMES PER DAY
     Dates: start: 20190530
  2. INBRIJA [Suspect]
     Active Substance: LEVODOPA
     Indication: On and off phenomenon
     Dosage: 2 DOSAGE FORM, PRN (NOT TO EXCEED 5 DOSES PER DAY)
     Dates: start: 20210408
  3. CARBIDOPA\LEVODOPA [Concomitant]
     Active Substance: CARBIDOPA\LEVODOPA
     Indication: Product used for unknown indication
     Dosage: 25-250 MG
     Route: 065
  4. RASAGILINE [Concomitant]
     Active Substance: RASAGILINE
     Indication: Product used for unknown indication
     Dosage: 1 MILLIGRAM
     Route: 065
  5. ROPINIROLE [Concomitant]
     Active Substance: ROPINIROLE
     Indication: Product used for unknown indication
     Dosage: 8 MILLIGRAM ER
     Route: 065

REACTIONS (2)
  - Drug ineffective [Unknown]
  - Intentional underdose [Unknown]

NARRATIVE: CASE EVENT DATE: 20190501
